FAERS Safety Report 17745508 (Version 1)
Quarter: 2020Q2

REPORT INFORMATION
  Report Type: Spontaneous
  Country: PT (occurrence: PT)
  Receive Date: 20200505
  Receipt Date: 20200505
  Transmission Date: 20200714
  Serious: Yes (Hospitalization, Other)
  Sender: FDA-Public Use
  Company Number: PT-STRIDES ARCOLAB LIMITED-2020SP005338

PATIENT
  Age: 58 Year
  Sex: Male

DRUGS (6)
  1. MYCOPHENOLATE MOFETIL. [Suspect]
     Active Substance: MYCOPHENOLATE MOFETIL
     Indication: RENAL TRANSPLANT
     Dosage: UNK
     Route: 065
  2. PREDNISOLONE. [Suspect]
     Active Substance: PREDNISOLONE
     Indication: RENAL TRANSPLANT
     Dosage: UNK
     Route: 065
  3. RITUXIMAB. [Suspect]
     Active Substance: RITUXIMAB
     Indication: RENAL TRANSPLANT
     Dosage: 3 DOSAGE FORM, TOTAL
     Route: 065
  4. THYMOGLOBULIN [Suspect]
     Active Substance: LAPINE T-LYMPHOCYTE IMMUNE GLOBULIN
     Indication: RENAL TRANSPLANT
     Dosage: UNK
     Route: 065
  5. EVEROLIMUS. [Suspect]
     Active Substance: EVEROLIMUS
     Indication: RENAL TRANSPLANT
     Dosage: UNK
     Route: 065
  6. TACROLIMUS. [Suspect]
     Active Substance: TACROLIMUS
     Indication: RENAL TRANSPLANT
     Dosage: UNK
     Route: 065

REACTIONS (17)
  - Large intestine polyp [Recovered/Resolved]
  - Fatigue [Recovered/Resolved]
  - Strongyloidiasis [Recovered/Resolved]
  - Isosporiasis [Recovered/Resolved]
  - Renal tubular atrophy [Recovered/Resolved]
  - Kidney fibrosis [Recovered/Resolved]
  - Metabolic acidosis [Recovered/Resolved]
  - Helicobacter infection [Recovered/Resolved]
  - Large intestinal ulcer [Recovered/Resolved]
  - Anorectal varices [Recovered/Resolved]
  - Diarrhoea [Recovered/Resolved]
  - Eosinophilia [Recovered/Resolved]
  - Diverticulum [Recovered/Resolved]
  - Renal impairment [Recovered/Resolved]
  - Abdominal pain [Recovered/Resolved]
  - Dehydration [Recovered/Resolved]
  - Large intestine infection [Recovered/Resolved]
